FAERS Safety Report 17847465 (Version 1)
Quarter: 2020Q2

REPORT INFORMATION
  Report Type: Spontaneous
  Country: BR (occurrence: BR)
  Receive Date: 20200601
  Receipt Date: 20200601
  Transmission Date: 20200714
  Serious: Yes (Death, Other)
  Sender: FDA-Public Use
  Company Number: BR-ASTRAZENECA-2020SE70252

PATIENT
  Sex: Female

DRUGS (1)
  1. OSIMERTINIBE [Suspect]
     Active Substance: OSIMERTINIB
     Route: 048

REACTIONS (4)
  - Suspected COVID-19 [Unknown]
  - Metastases to breast [Unknown]
  - Death [Fatal]
  - Metastases to lung [Unknown]

NARRATIVE: CASE EVENT DATE: 202002
